FAERS Safety Report 24988197 (Version 1)
Quarter: 2025Q1

REPORT INFORMATION
  Report Type: Spontaneous
  Country: US (occurrence: US)
  Receive Date: 20250220
  Receipt Date: 20250220
  Transmission Date: 20250409
  Serious: Yes (Hospitalization, Other)
  Sender: VIIV
  Company Number: US-VIIV HEALTHCARE-US2025020047

PATIENT

DRUGS (1)
  1. TIVICAY [Suspect]
     Active Substance: DOLUTEGRAVIR SODIUM
     Indication: Product used for unknown indication
     Dates: start: 201104

REACTIONS (5)
  - Asthenia [Unknown]
  - Hospitalisation [Not Recovered/Not Resolved]
  - Cerebrovascular accident [Unknown]
  - Seizure [Not Recovered/Not Resolved]
  - Brain operation [Unknown]

NARRATIVE: CASE EVENT DATE: 20250210
